FAERS Safety Report 21195515 (Version 1)
Quarter: 2022Q3

REPORT INFORMATION
  Report Type: Other
  Country: HN (occurrence: None)
  Receive Date: 20220810
  Receipt Date: 20220810
  Transmission Date: 20221027
  Serious: Yes (Other)
  Sender: FDA-Public Use
  Company Number: HN-ROCHE-3154968

PATIENT
  Age: 58 Year
  Sex: Male

DRUGS (12)
  1. RITUXIMAB [Suspect]
     Active Substance: RITUXIMAB
     Indication: Waldenstrom^s macroglobulinaemia
     Dosage: 7 CYCLES
     Route: 065
     Dates: start: 201711, end: 201803
  2. CYCLOPHOSPHAMIDE [Suspect]
     Active Substance: CYCLOPHOSPHAMIDE
     Indication: Waldenstrom^s macroglobulinaemia
     Dosage: 7 CYCLES
     Route: 065
     Dates: start: 201711, end: 201803
  3. VINCRISTINE [Suspect]
     Active Substance: VINCRISTINE
     Indication: Waldenstrom^s macroglobulinaemia
     Dosage: 7 CYCLES
     Route: 065
     Dates: start: 201711, end: 201803
  4. PREDNISONE [Suspect]
     Active Substance: PREDNISONE
     Indication: Waldenstrom^s macroglobulinaemia
     Dosage: 7 CYCLES
     Route: 065
     Dates: start: 201711, end: 201803
  5. ADRIAMYCIN [Suspect]
     Active Substance: DOXORUBICIN HYDROCHLORIDE
     Indication: Waldenstrom^s macroglobulinaemia
     Route: 065
  6. CHLORAMBUCIL [Suspect]
     Active Substance: CHLORAMBUCIL
     Indication: Waldenstrom^s macroglobulinaemia
     Dosage: 5 CYCLES
     Route: 065
  7. ERYTHROPOIETIN [Concomitant]
     Active Substance: ERYTHROPOIETIN
  8. OCTAPLEX [Concomitant]
     Active Substance: COAGULATION FACTOR IX HUMAN\COAGULATION FACTOR VII HUMAN\COAGULATION FACTOR X HUMAN\PROTEIN C\PROTEI
  9. LEVOTHYROXINE [Concomitant]
     Active Substance: LEVOTHYROXINE
     Indication: Hypothyroidism
  10. METHOTREXATE [Concomitant]
     Active Substance: METHOTREXATE
     Indication: Sjogren^s syndrome
  11. PLAQUINOL [Concomitant]
     Active Substance: HYDROXYCHLOROQUINE SULFATE
     Indication: Sjogren^s syndrome
  12. IMURAN [Concomitant]
     Active Substance: AZATHIOPRINE
     Indication: Sjogren^s syndrome

REACTIONS (5)
  - Febrile neutropenia [Unknown]
  - Upper respiratory tract infection [Unknown]
  - Oral fungal infection [Unknown]
  - Oesophageal infection [Unknown]
  - Off label use [Unknown]
